FAERS Safety Report 9281462 (Version 1)
Quarter: 2013Q2

REPORT INFORMATION
  Report Type: Spontaneous
  Country: GB (occurrence: GB)
  Receive Date: 20130509
  Receipt Date: 20130509
  Transmission Date: 20140414
  Serious: Yes (Life-Threatening, Hospitalization, Disabling)
  Sender: FDA-Public Use
  Company Number: GB-TEVA-403495ISR

PATIENT
  Age: 16 Year
  Sex: Female
  Weight: 80 kg

DRUGS (1)
  1. ERYTHROMYCIN [Suspect]
     Indication: ACNE
     Dosage: 500 MILLIGRAM DAILY;
     Route: 048
     Dates: start: 20130301, end: 20130411

REACTIONS (2)
  - Electrocardiogram QT prolonged [Not Recovered/Not Resolved]
  - Cardiac arrest [Not Recovered/Not Resolved]
